FAERS Safety Report 4468195-1 (Version None)
Quarter: 2004Q4

REPORT INFORMATION
  Report Type: 
  Country: None (occurrence: None)
  Receive Date: 20041004
  Receipt Date: 20040921
  Transmission Date: 20050328
  Serious: Yes (Hospitalization, Other)
  Sender: FDA-Public Use
  Company Number: 2004053463

PATIENT
  Age: 52 Year
  Sex: Male

DRUGS (2)
  1. RELPAX [Suspect]
     Indication: HORNER'S SYNDROME
     Dates: start: 20030909, end: 20040730
  2. ASPIRIN [Concomitant]

REACTIONS (2)
  - CORONARY ARTERY OCCLUSION [None]
  - MYOCARDIAL INFARCTION [None]
